FAERS Safety Report 18273702 (Version 1)
Quarter: 2020Q3

REPORT INFORMATION
  Report Type: Spontaneous
  Country: JP (occurrence: JP)
  Receive Date: 20200916
  Receipt Date: 20200916
  Transmission Date: 20201103
  Serious: Yes (Other)
  Sender: FDA-Public Use
  Company Number: JP-EMD SERONO-E2B_90080082

PATIENT
  Age: 31 Year
  Sex: Female

DRUGS (1)
  1. GONAL?F RFF [Suspect]
     Active Substance: FOLLITROPIN
     Indication: OVULATION INDUCTION
     Dates: end: 2019

REACTIONS (1)
  - Ovulation disorder [Unknown]
